FAERS Safety Report 6828024-5 (Version None)
Quarter: 2010Q3

REPORT INFORMATION
  Report Type: 
  Country: None (occurrence: None)
  Receive Date: 20100709
  Receipt Date: 20100701
  Transmission Date: 20110219
  Serious: Yes (Hospitalization)
  Sender: FDA-Public Use
  Company Number: A0869345A

PATIENT
  Age: 47 Year
  Sex: Female

DRUGS (1)
  1. AVANDIA [Suspect]
     Indication: TYPE 2 DIABETES MELLITUS
     Dosage: 4MG TWICE PER DAY
     Dates: start: 20061010, end: 20090201

REACTIONS (12)
  - ANAEMIA [None]
  - CHILLS [None]
  - DIABETES MELLITUS [None]
  - DIZZINESS [None]
  - EMOTIONAL DISORDER [None]
  - FATIGUE [None]
  - FRACTURE [None]
  - HEADACHE [None]
  - HEART RATE IRREGULAR [None]
  - MACULAR OEDEMA [None]
  - NERVOUSNESS [None]
  - VISUAL IMPAIRMENT [None]
